FAERS Safety Report 4786644-6 (Version None)
Quarter: 2005Q3

REPORT INFORMATION
  Report Type: 
  Country: None (occurrence: None)
  Receive Date: 20050929
  Receipt Date: 20050922
  Transmission Date: 20060218
  Serious: Yes (Other)
  Sender: FDA-Public Use
  Company Number: 200513830BCC

PATIENT
  Age: 69 Year
  Sex: Female
  Weight: 55.7924 kg

DRUGS (9)
  1. ALEVE (CAPLET) [Suspect]
     Indication: DYSPHONIA
     Dosage: SEE IMAGE
     Route: 048
     Dates: start: 20050401
  2. ALEVE (CAPLET) [Suspect]
     Indication: INFLAMMATION
     Dosage: SEE IMAGE
     Route: 048
     Dates: start: 20050401
  3. ALEVE (CAPLET) [Suspect]
     Indication: DYSPHONIA
     Dosage: SEE IMAGE
     Route: 048
     Dates: start: 20050913
  4. ALEVE (CAPLET) [Suspect]
     Indication: INFLAMMATION
     Dosage: SEE IMAGE
     Route: 048
     Dates: start: 20050913
  5. ACCOLATE [Concomitant]
  6. ZYRTEC [Concomitant]
  7. GLUCOPHAGE [Concomitant]
  8. ACYCLOVIR [Concomitant]
  9. PROPOXY [Concomitant]

REACTIONS (6)
  - ASTHENIA [None]
  - BLOOD GLUCOSE INCREASED [None]
  - BLOOD PRESSURE INCREASED [None]
  - DIARRHOEA [None]
  - HERPES ZOSTER [None]
  - NAUSEA [None]
